FAERS Safety Report 8945536 (Version 1)
Quarter: 2012Q4

REPORT INFORMATION
  Report Type: 
  Country: FR (occurrence: FR)
  Receive Date: 20121205
  Receipt Date: 20121205
  Transmission Date: 20130627
  Serious: Yes (Life-Threatening, Hospitalization)
  Sender: FDA-Public Use
  Company Number: FR-PFIZER INC-2012303388

PATIENT
  Age: 85 Year
  Sex: Female

DRUGS (4)
  1. CORDARONE [Suspect]
     Indication: ATRIAL FIBRILLATION
     Dosage: 200 mg, daily
     Route: 048
  2. PRADAXA [Interacting]
     Indication: ATRIAL FIBRILLATION
     Dosage: 75 mg, 2x/day
     Route: 048
     Dates: start: 201207, end: 20121024
  3. INEXIUM [Concomitant]
     Dosage: UNK
     Dates: end: 20121026
  4. ATARAX [Concomitant]
     Dosage: UNK

REACTIONS (5)
  - Drug interaction [Recovering/Resolving]
  - Overdose [Recovering/Resolving]
  - Rectal haemorrhage [Recovering/Resolving]
  - Anaemia [Recovering/Resolving]
  - Diverticulum intestinal haemorrhagic [Unknown]
